FAERS Safety Report 17624554 (Version 4)
Quarter: 2020Q3

REPORT INFORMATION
  Report Type: Spontaneous
  Country: US (occurrence: US)
  Receive Date: 20200403
  Receipt Date: 20200824
  Transmission Date: 20201102
  Serious: Yes (Death, Other)
  Sender: FDA-Public Use
  Company Number: US-BIOGEN-2020BI00856279

PATIENT
  Sex: Male
  Weight: 95.34 kg

DRUGS (1)
  1. TYSABRI [Suspect]
     Active Substance: NATALIZUMAB
     Indication: MULTIPLE SCLEROSIS
     Dosage: 51 INFUSIONS
     Route: 042
     Dates: start: 20160503, end: 20200317

REACTIONS (4)
  - Cerebrovascular accident [Unknown]
  - Multiple sclerosis relapse [Unknown]
  - Sepsis [Fatal]
  - Pneumonia [Fatal]
